FAERS Safety Report 11467564 (Version 1)
Quarter: 2015Q3

REPORT INFORMATION
  Report Type: Spontaneous
  Country: SE (occurrence: SE)
  Receive Date: 20150908
  Receipt Date: 20150908
  Transmission Date: 20151125
  Serious: Yes (Other)
  Sender: FDA-Public Use
  Company Number: SE-ACTAVIS-2015-18493

PATIENT
  Sex: Male

DRUGS (2)
  1. STESOLID [Suspect]
     Active Substance: DIAZEPAM
     Dosage: 30 MG, DAILY
     Route: 065
  2. STESOLID [Suspect]
     Active Substance: DIAZEPAM
     Indication: ANXIETY
     Dosage: 5 MG, DAILY
     Route: 065

REACTIONS (5)
  - Anxiety [Recovered/Resolved]
  - Limb discomfort [Recovered/Resolved]
  - Drug withdrawal syndrome [Recovered/Resolved]
  - Tinnitus [Recovered/Resolved]
  - Vision blurred [Recovered/Resolved]
